FAERS Safety Report 9004418 (Version 1)
Quarter: 2013Q1

REPORT INFORMATION
  Report Type: Spontaneous
  Country: US (occurrence: None)
  Receive Date: 20130103
  Receipt Date: 20130103
  Transmission Date: 20140127
  Serious: Yes (Life-Threatening)
  Sender: FDA-Public Use
  Company Number: None

PATIENT
  Age: 89 Year
  Sex: Male
  Weight: 87.09 kg

DRUGS (1)
  1. CYMBALTA [Suspect]
     Route: 048

REACTIONS (3)
  - Aggression [None]
  - Personality change [None]
  - Cognitive disorder [None]
